FAERS Safety Report 25148795 (Version 2)
Quarter: 2025Q2

REPORT INFORMATION
  Report Type: Report from Study
  Country: BR (occurrence: BR)
  Receive Date: 20250402
  Receipt Date: 20250513
  Transmission Date: 20250717
  Serious: Yes (Hospitalization, Other)
  Sender: TAKEDA
  Company Number: BR-TAKEDA-2024TUS108721

PATIENT
  Age: 43 Year
  Sex: Female

DRUGS (1)
  1. VEDOLIZUMAB [Suspect]
     Active Substance: VEDOLIZUMAB
     Indication: Colitis ulcerative
     Dosage: 300 MILLIGRAM, Q4WEEKS
     Dates: start: 20240506

REACTIONS (12)
  - Intestinal stenosis [Recovered/Resolved]
  - Rectal haemorrhage [Not Recovered/Not Resolved]
  - Rash papular [Not Recovered/Not Resolved]
  - Rectal discharge [Unknown]
  - Pain [Unknown]
  - Memory impairment [Unknown]
  - Arthritis [Unknown]
  - Malaise [Unknown]
  - Dizziness [Unknown]
  - Vision blurred [Unknown]
  - Product availability issue [Unknown]
  - Inappropriate schedule of product administration [Unknown]

NARRATIVE: CASE EVENT DATE: 20241008
